FAERS Safety Report 9808103 (Version 4)
Quarter: 2014Q1

REPORT INFORMATION
  Report Type: Spontaneous
  Country: IT (occurrence: IT)
  Receive Date: 20140110
  Receipt Date: 20140314
  Transmission Date: 20141002
  Serious: Yes (Other)
  Sender: FDA-Public Use
  Company Number: IT-PFIZER INC-2014007838

PATIENT
  Age: 75 Year
  Sex: Male

DRUGS (7)
  1. NORVASC [Suspect]
     Indication: HYPERTENSION
     Dosage: 7.5 MG, UNK
     Route: 048
     Dates: end: 20131216
  2. NORVASC [Suspect]
     Dosage: 1 DF, 1X/DAY
     Route: 048
     Dates: start: 20131216
  3. CARDURA [Suspect]
     Indication: HYPERTENSION
     Dosage: 2 MG, 1X/DAY
     Route: 048
     Dates: start: 20131216, end: 20131222
  4. LASIX [Suspect]
     Indication: HYPERTENSION
     Dosage: 1 DF, 1X/DAY
     Route: 048
     Dates: start: 20131216, end: 20131222
  5. ZESTRIL [Concomitant]
     Dosage: 1 DF, DAILY
     Route: 048
  6. RYTMONORM [Concomitant]
     Dosage: 150 MG, 3X/DAY
     Route: 048
  7. CARDIOASPIRIN [Concomitant]
     Dosage: 1 DF, DAILY
     Route: 048

REACTIONS (3)
  - Orthostatic hypotension [Unknown]
  - Malaise [Unknown]
  - Hyperhidrosis [Unknown]
